FAERS Safety Report 15656125 (Version 1)
Quarter: 2018Q4

REPORT INFORMATION
  Report Type: Spontaneous
  Country: JP (occurrence: JP)
  Receive Date: 20181126
  Receipt Date: 20181126
  Transmission Date: 20190205
  Serious: Yes (Other)
  Sender: FDA-Public Use
  Company Number: JP-PFIZER INC-2018483093

PATIENT
  Age: 78 Year
  Sex: Male

DRUGS (7)
  1. CEFTRIAXONE SODIUM. [Suspect]
     Active Substance: CEFTRIAXONE SODIUM
     Indication: URINARY TRACT INFECTION
     Dosage: UNK
     Dates: end: 20181002
  2. LYRICA [Suspect]
     Active Substance: PREGABALIN
     Dosage: 75 MG, 2X/DAY
     Route: 048
     Dates: start: 20180706, end: 20180918
  3. RECOMODULIN [Suspect]
     Active Substance: THROMBOMODULIN ALFA
     Indication: URINARY TRACT INFECTION
  4. LYRICA [Suspect]
     Active Substance: PREGABALIN
     Dosage: 75 MG, 2X/DAY
     Route: 048
     Dates: start: 20180926
  5. LYRICA [Suspect]
     Active Substance: PREGABALIN
     Indication: PAIN
     Dosage: 150 TO 300 MG, DAILY
     Route: 048
     Dates: end: 20180716
  6. LOXONIN [Concomitant]
     Active Substance: LOXOPROFEN SODIUM
     Indication: PAIN
     Dosage: 100 MG, 1X/DAY
     Route: 003
     Dates: start: 2013
  7. BROMFENAC SODIUM [Concomitant]
     Active Substance: BROMFENAC SODIUM
     Dosage: 1 DROP, 2X/DAY

REACTIONS (2)
  - Liver abscess [Unknown]
  - Pneumonia [Unknown]

NARRATIVE: CASE EVENT DATE: 20181005
